FAERS Safety Report 25314771 (Version 3)
Quarter: 2025Q3

REPORT INFORMATION
  Report Type: Spontaneous
  Country: EG (occurrence: EG)
  Receive Date: 20250514
  Receipt Date: 20250708
  Transmission Date: 20251021
  Serious: Yes (Other)
  Sender: Alora Pharma
  Company Number: EG-AVION PHARMACEUTICALS-2025ALO02206

PATIENT
  Sex: Female

DRUGS (2)
  1. BALCOLTRA [Suspect]
     Active Substance: ETHINYL ESTRADIOL\LEVONORGESTREL
     Indication: Androgenetic alopecia
     Route: 061
  2. MINOXIDIL [Concomitant]
     Active Substance: MINOXIDIL
     Route: 061

REACTIONS (1)
  - Angioedema [Unknown]
